FAERS Safety Report 10470534 (Version 15)
Quarter: 2015Q1

REPORT INFORMATION
  Report Type: Report from Study
  Country: FR (occurrence: FR)
  Receive Date: 20140923
  Receipt Date: 20150303
  Transmission Date: 20150720
  Serious: Yes (Hospitalization)
  Sender: FDA-Public Use
  Company Number: FR-009507513-1406FRA012230

PATIENT
  Age: 79 Year
  Sex: Female
  Weight: 75.5 kg

DRUGS (11)
  1. ATENOLOL. [Concomitant]
     Active Substance: ATENOLOL
     Indication: HYPERTENSION
     Dosage: 50 MG, QD
     Route: 048
     Dates: start: 20140506, end: 20140618
  2. INEXIUM (ESOMEPRAZOLE MAGNESIUM) [Concomitant]
     Active Substance: ESOMEPRAZOLE MAGNESIUM
     Indication: PROPHYLAXIS
     Dosage: 20 MG, QD
     Route: 048
     Dates: start: 20140521, end: 20150121
  3. GELTIM LP [Concomitant]
     Active Substance: TIMOLOL MALEATE
     Indication: CATARACT
     Dosage: 0.5 GTT, BID
     Route: 047
     Dates: start: 201306
  4. DOLIPRANE [Concomitant]
     Active Substance: ACETAMINOPHEN
     Indication: SCIATICA
     Dosage: 333.33 MG, TID; TOTAL DAILY DOSE: 1000 MG
     Route: 048
     Dates: start: 20140519
  5. DIFFU-K [Concomitant]
     Active Substance: POTASSIUM CHLORIDE
     Indication: HYPOKALAEMIA
     Dosage: 900 MG, BID
     Route: 048
     Dates: start: 20140524, end: 20140527
  6. DUPHALAC [Concomitant]
     Active Substance: LACTULOSE
     Indication: CONSTIPATION
     Dosage: 1 PACKET, QD
     Route: 048
     Dates: start: 20140526, end: 20140529
  7. PEMBROLIZUMAB. [Suspect]
     Active Substance: PEMBROLIZUMAB
     Dosage: 10 MG/KG, QOW
     Route: 042
     Dates: start: 20140709
  8. FRAGMINE [Concomitant]
     Active Substance: DALTEPARIN SODIUM
     Indication: THROMBOSIS PROPHYLAXIS
     Dosage: 2500 U, QD
     Route: 042
     Dates: start: 20140523, end: 20140527
  9. PEMBROLIZUMAB. [Suspect]
     Active Substance: PEMBROLIZUMAB
     Indication: MALIGNANT MELANOMA
     Dosage: 10 MG/KG, QOW
     Route: 042
     Dates: start: 20140115, end: 20140521
  10. PEMBROLIZUMAB. [Suspect]
     Active Substance: PEMBROLIZUMAB
     Dosage: 10 MG/KG, QOW
     Route: 042
     Dates: start: 20140604, end: 20140604
  11. PROFENID [Concomitant]
     Active Substance: KETOPROFEN
     Indication: SCIATICA
     Dosage: 100 MG, QD
     Route: 048
     Dates: start: 20140521

REACTIONS (1)
  - Blood corticotrophin decreased [Not Recovered/Not Resolved]

NARRATIVE: CASE EVENT DATE: 20140610
